FAERS Safety Report 4413371-7 (Version None)
Quarter: 2004Q3

REPORT INFORMATION
  Report Type: 
  Country: None (occurrence: None)
  Receive Date: 20040728
  Receipt Date: 20040721
  Transmission Date: 20050211
  Serious: Yes (Hospitalization)
  Sender: FDA-Public Use
  Company Number: US-JNJFOC-20040705994

PATIENT
  Sex: 0

DRUGS (1)
  1. LEVAQUIN [Suspect]

REACTIONS (1)
  - MULTIPLE SCLEROSIS RELAPSE [None]
